FAERS Safety Report 17821252 (Version 1)
Quarter: 2020Q2

REPORT INFORMATION
  Report Type: Spontaneous
  Country: FR (occurrence: FR)
  Receive Date: 20200525
  Receipt Date: 20200525
  Transmission Date: 20200714
  Serious: Yes (Hospitalization, Other)
  Sender: FDA-Public Use
  Company Number: FR-SA-2020SA131665

PATIENT
  Age: 68 Year
  Sex: Male
  Weight: 66.1 kg

DRUGS (5)
  1. OXALIPLATIN. [Suspect]
     Active Substance: OXALIPLATIN
     Dosage: 247 MG, QCY
     Route: 041
     Dates: start: 20200417, end: 20200417
  2. CAPECITABINE. [Suspect]
     Active Substance: CAPECITABINE
     Indication: ADENOCARCINOMA OF COLON
     Dosage: 7200 MG, QCY
     Route: 048
     Dates: start: 20200327, end: 20200327
  3. BEVACIZUMAB. [Suspect]
     Active Substance: BEVACIZUMAB
     Indication: ADENOCARCINOMA OF COLON
     Dosage: 565 MG, TOTAL
     Route: 041
     Dates: start: 20200417, end: 20200417
  4. CAPECITABINE. [Suspect]
     Active Substance: CAPECITABINE
     Dosage: 7200 MG, QCY
     Route: 048
     Dates: start: 20200428, end: 20200428
  5. OXALIPLATIN. [Suspect]
     Active Substance: OXALIPLATIN
     Indication: ADENOCARCINOMA OF COLON
     Dosage: 247 MG, QCY
     Route: 041
     Dates: start: 20200327, end: 20200327

REACTIONS (1)
  - Cardiac failure [Recovering/Resolving]

NARRATIVE: CASE EVENT DATE: 20200422
